FAERS Safety Report 6245334-3 (Version None)
Quarter: 2009Q2

REPORT INFORMATION
  Report Type: 
  Country: None (occurrence: None)
  Receive Date: 20090623
  Receipt Date: 20090623
  Transmission Date: 20091009
  Serious: No
  Sender: FDA-Public Use
  Company Number: None

PATIENT
  Age: 50 Year
  Sex: Female
  Weight: 58.0604 kg

DRUGS (2)
  1. ZICAM 15ML [Suspect]
     Indication: INFLUENZA
     Dosage: 15ML TWICE A DAY
     Dates: start: 20080304, end: 20080309
  2. ZICAM 15ML [Suspect]
     Indication: NASOPHARYNGITIS
     Dosage: 15ML TWICE A DAY
     Dates: start: 20080304, end: 20080309

REACTIONS (2)
  - AGEUSIA [None]
  - ANOSMIA [None]
